FAERS Safety Report 5820568-8 (Version None)
Quarter: 2008Q3

REPORT INFORMATION
  Report Type: 
  Country: None (occurrence: None)
  Receive Date: 20080718
  Receipt Date: 20080718
  Transmission Date: 20090109
  Serious: Yes (Other)
  Sender: FDA-Public Use
  Company Number: None

PATIENT
  Age: 33 Year
  Sex: Female
  Weight: 56.6996 kg

DRUGS (1)
  1. ROZEREM [Suspect]
     Indication: INSOMNIA
     Dosage: 1 PILL 1/DAY PO
     Route: 048
     Dates: start: 20080315, end: 20080713

REACTIONS (3)
  - AMENORRHOEA [None]
  - ANGER [None]
  - MENSTRUATION IRREGULAR [None]
